FAERS Safety Report 21180949 (Version 1)
Quarter: 2022Q3

REPORT INFORMATION
  Report Type: Spontaneous
  Country: US (occurrence: US)
  Receive Date: 20220806
  Receipt Date: 20220806
  Transmission Date: 20221026
  Serious: No
  Sender: FDA-Public Use
  Company Number: US-SA-SAC20220728000608

PATIENT
  Sex: Male

DRUGS (4)
  1. DUPIXENT [Suspect]
     Active Substance: DUPILUMAB
     Indication: Dermatitis atopic
     Dosage: 300 MG, QOW
     Route: 058
     Dates: start: 20220221
  2. ABILIFY [Concomitant]
     Active Substance: ARIPIPRAZOLE
  3. ARIPIPRAZOLE [Concomitant]
     Active Substance: ARIPIPRAZOLE
  4. GUANFACINE HYDROCHLORIDE [Concomitant]
     Active Substance: GUANFACINE HYDROCHLORIDE

REACTIONS (1)
  - Product dose omission issue [Unknown]

NARRATIVE: CASE EVENT DATE: 20220101
